FAERS Safety Report 8776885 (Version 2)
Quarter: 2013Q2

REPORT INFORMATION
  Report Type: Spontaneous
  Country: US (occurrence: US)
  Receive Date: 20120911
  Receipt Date: 20130620
  Transmission Date: 20140414
  Serious: Yes (Hospitalization)
  Sender: FDA-Public Use
  Company Number: US-PFIZER INC-2012220224

PATIENT
  Age: 57 Year
  Sex: Male

DRUGS (1)
  1. ATROPINE SULFATE [Suspect]
     Indication: GINGIVAL DISORDER
     Dosage: 2 ML OF OPHTHALMIC ATROPINE (10 MG/ML)
     Route: 060

REACTIONS (12)
  - Overdose [Recovered/Resolved]
  - Administration related reaction [Recovered/Resolved]
  - Delirium [Recovered/Resolved]
  - Mydriasis [Recovered/Resolved]
  - Mucosal dryness [Recovered/Resolved]
  - Tachycardia [Recovered/Resolved]
  - Dysarthria [Recovered/Resolved]
  - Bladder dilatation [Recovered/Resolved]
  - Anticholinergic syndrome [Recovered/Resolved]
  - Toxicity to various agents [Recovered/Resolved]
  - Incorrect route of drug administration [None]
  - Iatrogenic injury [None]
